FAERS Safety Report 8493447-8 (Version None)
Quarter: 2012Q3

REPORT INFORMATION
  Report Type: 
  Country: None (occurrence: None)
  Receive Date: 20120706
  Receipt Date: 20120627
  Transmission Date: 20120928
  Serious: Yes (Death, Life-Threatening, Hospitalization, Other)
  Sender: FDA-Public Use
  Company Number: US-BRISTOL-MYERS SQUIBB COMPANY-16349409

PATIENT
  Age: 70 Year
  Sex: Female

DRUGS (28)
  1. LOPERAMIDE [Concomitant]
  2. HYZAAR [Concomitant]
  3. YERVOY [Suspect]
     Indication: METASTATIC MALIGNANT MELANOMA
     Dosage: TOTAL DOSE: 3 DOSES
     Route: 042
     Dates: start: 20111004, end: 20111115
  4. INSULIN [Concomitant]
  5. ZOLPIDEM [Concomitant]
     Dosage: AT NIGHT PRN
     Route: 048
  6. EVISTA [Concomitant]
  7. LASIX [Concomitant]
  8. FLUTICASONE PROPIONATE [Concomitant]
  9. SALMETEROL [Concomitant]
  10. IRON SULFATETHIAMIN COMPOUND TAB [Concomitant]
  11. PREDNISONE TAB [Concomitant]
  12. OMEPRAZOLE [Concomitant]
  13. CALCIUM CARBONATE [Concomitant]
  14. LEVOTHYROXINE SODIUM [Concomitant]
  15. ASPIRIN [Concomitant]
  16. VITAMIN D [Concomitant]
  17. MULTI-VITAMIN [Concomitant]
  18. COUMADIN [Concomitant]
  19. REGLAN [Concomitant]
  20. ADVAIR DISKUS 100/50 [Concomitant]
     Dosage: 250/50
  21. CARTIA XT [Concomitant]
  22. DILTIAZEM [Concomitant]
     Route: 048
  23. PRILOSEC [Concomitant]
     Route: 048
  24. CHOLESTYRAMINE [Concomitant]
  25. HYDROCHLOROTHIAZIDE [Concomitant]
     Route: 048
  26. METOPROLOL [Concomitant]
     Route: 048
  27. TOPROL-XL [Concomitant]
  28. LOSARTAN POTASSIUM [Concomitant]
     Dosage: 100/25MG

REACTIONS (7)
  - RESPIRATORY FAILURE [None]
  - INTESTINAL PERFORATION [None]
  - LYMPHADENOPATHY MEDIASTINAL [None]
  - HYPOTENSION [None]
  - PULMONARY EMBOLISM [None]
  - COLITIS [None]
  - GASTROINTESTINAL HAEMORRHAGE [None]
